FAERS Safety Report 9351651 (Version 1)
Quarter: 2013Q2

REPORT INFORMATION
  Report Type: Report from Study
  Country: GB (occurrence: GB)
  Receive Date: 20130617
  Receipt Date: 20130617
  Transmission Date: 20140414
  Serious: Yes (Death)
  Sender: FDA-Public Use
  Company Number: GB-ABBOTT-13P-167-1104241-00

PATIENT
  Age: 61 Year
  Sex: Male
  Weight: 72 kg

DRUGS (2)
  1. HUMIRA [Suspect]
     Indication: RHEUMATOID ARTHRITIS
     Route: 058
     Dates: start: 20030213, end: 20090615
  2. HUMIRA [Suspect]

REACTIONS (3)
  - Acute myocardial infarction [Fatal]
  - Arteriosclerosis coronary artery [Fatal]
  - Chronic obstructive pulmonary disease [Fatal]
